FAERS Safety Report 24941856 (Version 1)
Quarter: 2025Q1

REPORT INFORMATION
  Report Type: Spontaneous
  Country: US (occurrence: US)
  Receive Date: 20250207
  Receipt Date: 20250207
  Transmission Date: 20250409
  Serious: Yes (Other)
  Sender: TEVA
  Company Number: US-TEVA-VS-3293999

PATIENT

DRUGS (1)
  1. AMPHETAMINE SULFATE\DEXTROAMPHETAMINE [Suspect]
     Active Substance: AMPHETAMINE SULFATE\DEXTROAMPHETAMINE
     Indication: Product used for unknown indication
     Route: 065

REACTIONS (8)
  - Syncope [Unknown]
  - Gastrointestinal disorder [Unknown]
  - Peripheral coldness [Unknown]
  - Heart rate increased [Unknown]
  - Dizziness [Unknown]
  - Hyperhidrosis [Unknown]
  - Headache [Unknown]
  - Product quality issue [Unknown]
